FAERS Safety Report 10032630 (Version 1)
Quarter: 2014Q1

REPORT INFORMATION
  Report Type: Spontaneous
  Country: US (occurrence: US)
  Receive Date: 20140324
  Receipt Date: 20140324
  Transmission Date: 20141002
  Serious: No
  Sender: FDA-Public Use
  Company Number: US-PFIZER INC-2014080450

PATIENT
  Sex: Female

DRUGS (1)
  1. ADVIL [Suspect]
     Indication: JOINT DISLOCATION
     Dosage: 2 DF, (EVERY 10-12 HOURS)
     Route: 048

REACTIONS (3)
  - Drug hypersensitivity [Unknown]
  - Erythema [Unknown]
  - Pruritus [Unknown]
